FAERS Safety Report 14963311 (Version 1)
Quarter: 2018Q2

REPORT INFORMATION
  Report Type: Report from Study
  Country: DE (occurrence: DE)
  Receive Date: 20180601
  Receipt Date: 20180601
  Transmission Date: 20180711
  Serious: Yes (Hospitalization)
  Sender: FDA-Public Use
  Company Number: DE-PFIZER INC-2018217842

PATIENT
  Age: 78 Year
  Sex: Female
  Weight: 68.55 kg

DRUGS (16)
  1. MCP [Concomitant]
     Active Substance: METOCLOPRAMIDE HYDROCHLORIDE
     Route: 048
     Dates: start: 20151022
  2. PACLITAXEL. [Suspect]
     Active Substance: PACLITAXEL
     Dosage: UNK
     Route: 042
     Dates: start: 20151112
  3. CARBOPLATIN. [Suspect]
     Active Substance: CARBOPLATIN
     Indication: OVARIAN CANCER
     Dosage: 455 MG, EVERY 3 WEEKS
     Route: 042
     Dates: start: 20150910
  4. CARBOPLATIN. [Suspect]
     Active Substance: CARBOPLATIN
     Dosage: 450 MG, UNK
     Route: 042
     Dates: start: 20151112
  5. COTRIM FORTE [Concomitant]
     Active Substance: SULFAMETHOXAZOLE\TRIMETHOPRIM
     Indication: URINARY TRACT INFECTION
     Dosage: 960 MG, UNK
     Route: 048
     Dates: start: 20151001, end: 201510
  6. PACLITAXEL. [Suspect]
     Active Substance: PACLITAXEL
     Dosage: 300 MG, UNK
     Route: 042
     Dates: start: 20151022
  7. PACLITAXEL. [Suspect]
     Active Substance: PACLITAXEL
     Dosage: 300 MG, UNK
     Route: 042
     Dates: start: 20151203
  8. BEVACIZUMAB. [Suspect]
     Active Substance: BEVACIZUMAB
     Dosage: 1025 MG, EVERY 3 WEEKS
     Route: 042
     Dates: start: 20151203
  9. CARBOPLATIN. [Suspect]
     Active Substance: CARBOPLATIN
     Dosage: 4
     Route: 042
     Dates: start: 20121203
  10. CLEXANE [Concomitant]
     Active Substance: ENOXAPARIN SODIUM
     Indication: THROMBOSIS PROPHYLAXIS
     Dosage: 40 MG, 1X/DAY
     Route: 058
     Dates: start: 20150916, end: 20150917
  11. PACLITAXEL. [Suspect]
     Active Substance: PACLITAXEL
     Indication: OVARIAN CANCER
     Dosage: 300 MG, EVERY 3 WEEKS
     Route: 042
     Dates: start: 20150910, end: 20151222
  12. CARBOPLATIN. [Suspect]
     Active Substance: CARBOPLATIN
     Dosage: 460 MG, UNK
     Route: 042
     Dates: start: 20151001
  13. PANTOZOL [Concomitant]
     Active Substance: PANTOPRAZOLE SODIUM
     Route: 048
     Dates: start: 20151022
  14. PACLITAXEL. [Suspect]
     Active Substance: PACLITAXEL
     Dosage: 300 MG, UNK
     Route: 042
     Dates: start: 20151001
  15. CARBOPLATIN. [Suspect]
     Active Substance: CARBOPLATIN
     Dosage: 430 MG, UNK
     Route: 042
     Dates: start: 20151022
  16. BEVACIZUMAB. [Suspect]
     Active Substance: BEVACIZUMAB
     Indication: OVARIAN CANCER
     Dosage: LAST DOSE PRIOR TO SAE 22OCT2015 (1025 MG)
     Route: 042
     Dates: start: 20151001

REACTIONS (9)
  - General physical health deterioration [Recovered/Resolved]
  - Peripheral swelling [Not Recovered/Not Resolved]
  - Vomiting [Recovered/Resolved]
  - Peripheral swelling [Recovered/Resolved]
  - Drug hypersensitivity [Recovered/Resolved]
  - Urinary tract infection [Recovered/Resolved]
  - Nausea [Recovered/Resolved]
  - Hypertension [Not Recovered/Not Resolved]
  - Circulatory collapse [Recovered/Resolved]

NARRATIVE: CASE EVENT DATE: 20150910
